FAERS Safety Report 14814126 (Version 1)
Quarter: 2018Q2

REPORT INFORMATION
  Report Type: Spontaneous
  Country: DK (occurrence: DK)
  Receive Date: 20180426
  Receipt Date: 20180426
  Transmission Date: 20180711
  Serious: Yes (Hospitalization, Other)
  Sender: FDA-Public Use
  Company Number: DK-AMGEN-DNKSP2018054350

PATIENT
  Age: 74 Year
  Sex: Female

DRUGS (17)
  1. ALGINIC ACID [Concomitant]
     Active Substance: ALGINIC ACID
     Indication: GASTROOESOPHAGEAL REFLUX DISEASE
     Dosage: 10-20 ML WHEN NEEDED. NOT MORE THAN 1 TIME PER DAY, AS NECESSARY
     Route: 048
     Dates: start: 20171025
  2. LIDOCAINE. [Concomitant]
     Active Substance: LIDOCAINE
     Indication: PAIN
     Dosage: 1 APPLICATION NOT MORE THAN 4 TIMES PER DAY (20 MG/ML), AS NECESSARY
     Route: 048
     Dates: start: 20170201
  3. PARACETAMOL [Concomitant]
     Active Substance: ACETAMINOPHEN
     Indication: PAIN
     Dosage: 2 DF (500 MG) (2 TABLETS NOT MORE THAN 4 TIMES PER DAY), AS NECESSARY
     Route: 048
     Dates: start: 20170314
  4. PANTOPRAZOLE [Concomitant]
     Active Substance: PANTOPRAZOLE
     Indication: GASTRIC ULCER
     Dosage: 80 MG (STRENGHT 40 MG), QD
     Route: 048
     Dates: start: 20170127
  5. MACROGOL [Concomitant]
     Active Substance: POLYETHYLENE GLYCOLS
     Indication: CONSTIPATION
     Dosage: 1 DF (1 SACHET WHEN NEEDED, NOT MORE THAN 6 TIMES DAILY), AS NECESSARY
     Route: 048
     Dates: start: 20161207
  6. SERTRALINE [Concomitant]
     Active Substance: SERTRALINE HYDROCHLORIDE
     Indication: ANXIETY
     Dosage: 50 MG, QD
     Route: 048
     Dates: start: 20161013
  7. DOMPERIDONE [Concomitant]
     Active Substance: DOMPERIDONE
     Indication: NAUSEA
     Dosage: 30 MG (STRENGHT 10 MG), QD
     Route: 048
     Dates: start: 20161207
  8. XGEVA [Suspect]
     Active Substance: DENOSUMAB
     Indication: HYPERCALCAEMIA
     Dosage: 120 MG, Q4WK
     Route: 058
     Dates: start: 20160216
  9. OXYCODON HCL ACTAVIS [Concomitant]
     Active Substance: OXYCODONE HYDROCHLORIDE
     Indication: PAIN
     Dosage: 1 DF (10 MG) NOT MORE THAN 3 TIMES PER DAY, AS NECESSARY
     Route: 048
     Dates: start: 20170707
  10. BISACODYL. [Concomitant]
     Active Substance: BISACODYL
     Indication: CONSTIPATION
     Dosage: 5 MG, QD
     Route: 048
     Dates: start: 20160425
  11. CLOPIDOGREL [Concomitant]
     Active Substance: CLOPIDOGREL BISULFATE
     Indication: THROMBOSIS PROPHYLAXIS
     Dosage: 75 MG, QD
     Route: 048
     Dates: start: 20140926
  12. LORAZEPAM. [Concomitant]
     Active Substance: LORAZEPAM
     Indication: SEDATIVE THERAPY
     Dosage: 1 MG, QD
     Route: 048
     Dates: start: 20160322
  13. FENTANYL. [Concomitant]
     Active Substance: FENTANYL
     Indication: PAIN
     Dosage: 1 DF (25 MCG/ TIME), 2 DAY
     Route: 062
     Dates: start: 20170426
  14. FULVESTRANT. [Concomitant]
     Active Substance: FULVESTRANT
     Indication: BREAST CANCER
     Dosage: 500 MG (250 MG/5ML), Q4WK
     Route: 030
     Dates: start: 20160531, end: 20171229
  15. QUININE [Concomitant]
     Active Substance: QUININE
     Indication: MUSCLE SPASMS
     Dosage: 100 MG, QD
     Route: 048
     Dates: start: 20141013
  16. CALCICHEW-D3 FORTE [Concomitant]
     Active Substance: CALCIUM\CHOLECALCIFEROL
     Indication: MINERAL SUPPLEMENTATION
     Dosage: 1 DF (500 MG + 10 MCG), QD
     Route: 048
     Dates: start: 20161117
  17. ZOPICLONE [Concomitant]
     Active Substance: ZOPICLONE
     Indication: INSOMNIA
     Dosage: 7.5 MG, QD
     Route: 048
     Dates: start: 20180205

REACTIONS (4)
  - Sequestrectomy [Recovered/Resolved]
  - Tooth extraction [Recovered/Resolved]
  - Exposed bone in jaw [Recovered/Resolved]
  - Osteonecrosis of jaw [Recovered/Resolved]

NARRATIVE: CASE EVENT DATE: 20171110
